FAERS Safety Report 7051624-7 (Version None)
Quarter: 2010Q4

REPORT INFORMATION
  Report Type: 
  Country: None (occurrence: None)
  Receive Date: 20101019
  Receipt Date: 20101005
  Transmission Date: 20110411
  Serious: Yes (Hospitalization)
  Sender: FDA-Public Use
  Company Number: US-ELI_LILLY_AND_COMPANY-US201009000654

PATIENT
  Sex: Male

DRUGS (7)
  1. FORTEO [Suspect]
     Indication: OSTEOPOROSIS
     Dosage: 20 UG, DAILY (1/D)
  2. COUMADIN [Concomitant]
  3. LOPRESSOR [Concomitant]
  4. ACTOS [Concomitant]
  5. GLYBURIDE [Concomitant]
  6. CALCIUM [Concomitant]
  7. ZINC [Concomitant]

REACTIONS (4)
  - ATRIAL FLUTTER [None]
  - DIABETES MELLITUS [None]
  - FATIGUE [None]
  - TACHYCARDIA [None]
